FAERS Safety Report 4316251-0 (Version None)
Quarter: 2004Q1

REPORT INFORMATION
  Report Type: 
  Country: None (occurrence: None)
  Receive Date: 20040312
  Receipt Date: 20040308
  Transmission Date: 20041129
  Serious: Yes (Life-Threatening)
  Sender: FDA-Public Use
  Company Number: DE-ROCHE-360866

PATIENT
  Age: 50 Year
  Sex: Female
  Weight: 70 kg

DRUGS (2)
  1. TAMIFLU [Suspect]
     Indication: INFLUENZA
     Route: 048
     Dates: start: 20040210
  2. NOVAMINSULFON [Suspect]
     Indication: INFLUENZA
     Route: 048
     Dates: start: 20040210

REACTIONS (1)
  - ILL-DEFINED DISORDER [None]
